FAERS Safety Report 21883372 (Version 1)
Quarter: 2023Q1

REPORT INFORMATION
  Report Type: Report from Study
  Country: US (occurrence: US)
  Receive Date: 20230119
  Receipt Date: 20230119
  Transmission Date: 20230418
  Serious: No
  Sender: FDA-Public Use
  Company Number: US-Accord-271544

PATIENT
  Sex: Male
  Weight: 101.60 kg

DRUGS (1)
  1. CLOZAPINE [Suspect]
     Active Substance: CLOZAPINE
     Indication: Psychotic disorder
     Dosage: 225MG / BY MOUTH / EVERY NIGHT
     Route: 048

REACTIONS (1)
  - Product dose omission issue [Unknown]
